FAERS Safety Report 8012951-X (Version None)
Quarter: 2011Q4

REPORT INFORMATION
  Report Type: 
  Country: None (occurrence: None)
  Receive Date: 20111223
  Receipt Date: 20111213
  Transmission Date: 20120403
  Serious: Yes (Other)
  Sender: FDA-Public Use
  Company Number: 2011P1009498

PATIENT
  Age: 36 Year
  Sex: Female
  Weight: 50.3493 kg

DRUGS (3)
  1. VITAMIN AND MINERAL PRENATAL SUPPLEMENT W/ FOLIC ACID CAP [Concomitant]
  2. LEVOTHROID [Concomitant]
  3. PROGESTERONE INJ [Suspect]
     Indication: INFERTILITY
     Dosage: 50 MG;QD;IM
     Route: 030
     Dates: start: 20111011, end: 20111014

REACTIONS (6)
  - CHILLS [None]
  - HUMAN CHORIONIC GONADOTROPIN DECREASED [None]
  - PROGESTERONE DECREASED [None]
  - INJECTION SITE PAIN [None]
  - ABORTION SPONTANEOUS [None]
  - PYREXIA [None]
